FAERS Safety Report 16451076 (Version 1)
Quarter: 2019Q2

REPORT INFORMATION
  Report Type: Spontaneous
  Country: FR (occurrence: FR)
  Receive Date: 20190619
  Receipt Date: 20190619
  Transmission Date: 20190711
  Serious: Yes (Hospitalization)
  Sender: FDA-Public Use
  Company Number: FR-TEVA-2019-FR-1065050

PATIENT
  Age: 63 Year
  Sex: Female
  Weight: 61 kg

DRUGS (4)
  1. FURADANTINE 50 MG, G?LULE [Suspect]
     Active Substance: NITROFURANTOIN
     Indication: URINARY TRACT INFECTION
     Dosage: 300MG PER DAY
     Route: 048
     Dates: start: 20190513, end: 20190519
  2. SPIFEN [Suspect]
     Active Substance: IBUPROFEN
     Indication: URINARY TRACT INFECTION
     Dosage: 1200MG PER DAY
     Route: 048
     Dates: start: 20190513, end: 20190517
  3. SPASFON (PHLOROGLUCINOL) [Suspect]
     Active Substance: PHLOROGLUCINOL
     Indication: URINARY TRACT INFECTION
     Dosage: 6 CP / DAY
     Route: 048
     Dates: start: 20190513, end: 20190517
  4. ZOPICLONE MYLAN 7,5 MG, COMPRIM? PELLICUL? S?CABLE [Suspect]
     Active Substance: ZOPICLONE
     Indication: DEPRESSION
     Dosage: 7.5MG PER DAY
     Route: 048
     Dates: start: 20190513, end: 20190523

REACTIONS (3)
  - Rash [Recovered/Resolved]
  - Face oedema [Recovered/Resolved]
  - Eyelid oedema [Recovered/Resolved]

NARRATIVE: CASE EVENT DATE: 20190516
